FAERS Safety Report 25648477 (Version 3)
Quarter: 2025Q4

REPORT INFORMATION
  Report Type: Spontaneous
  Country: US (occurrence: US)
  Receive Date: 20250806
  Receipt Date: 20251013
  Transmission Date: 20260117
  Serious: No
  Sender: SANDOZ
  Company Number: US-SANDOZ-SDZ2025US054652

PATIENT
  Age: 64 Year
  Sex: Female

DRUGS (4)
  1. HYRIMOZ [Suspect]
     Active Substance: ADALIMUMAB-ADAZ
     Indication: Granuloma annulare
     Dosage: 80 MG,ONE SINGLE DOSE
     Route: 058
  2. HYRIMOZ [Suspect]
     Active Substance: ADALIMUMAB-ADAZ
     Indication: Granuloma annulare
     Dosage: 80 MG,ONE SINGLE DOSE
     Route: 058
  3. HYRIMOZ [Suspect]
     Active Substance: ADALIMUMAB-ADAZ
     Dosage: 40 MG, Q2W
     Route: 058
     Dates: start: 20250715
  4. HYRIMOZ [Suspect]
     Active Substance: ADALIMUMAB-ADAZ
     Dosage: 40 MG, Q2W
     Route: 058
     Dates: start: 20250715

REACTIONS (4)
  - Illness [Not Recovered/Not Resolved]
  - Drug dose omission by device [Unknown]
  - Product use in unapproved indication [Unknown]
  - Device issue [Unknown]

NARRATIVE: CASE EVENT DATE: 20251005
